FAERS Safety Report 18336708 (Version 1)
Quarter: 2020Q4

REPORT INFORMATION
  Report Type: Spontaneous
  Country: US (occurrence: US)
  Receive Date: 20201001
  Receipt Date: 20201001
  Transmission Date: 20210113
  Serious: Yes (Other)
  Sender: FDA-Public Use
  Company Number: US-FRESENIUS KABI-FK202010148

PATIENT
  Age: 44 Year
  Sex: Female

DRUGS (4)
  1. IFOSFAMIDE (MANUFACTURER UNKNOWN) [Suspect]
     Active Substance: IFOSFAMIDE
     Indication: ANGIOSARCOMA METASTATIC
     Dosage: 2000 MG/M2 ON DAY 1-5
     Route: 065
  2. GRANULOCYTE COLONY STIMULATING FACTOR [Concomitant]
     Active Substance: GRANULOCYTE COLONY-STIMULATING FACTOR NOS
     Indication: ANGIOSARCOMA METASTATIC
     Route: 065
  3. MESNA (MANUFACTURER UNKNOWN) [Suspect]
     Active Substance: MESNA
     Indication: ANGIOSARCOMA METASTATIC
     Route: 065
  4. DOXORUBICIN (MANUFACTURER UNKNOWN) [Suspect]
     Active Substance: DOXORUBICIN
     Indication: ANGIOSARCOMA METASTATIC
     Dosage: 25 MG/M2 ON DAY 1-3
     Route: 065

REACTIONS (1)
  - Febrile neutropenia [Unknown]
